FAERS Safety Report 15603208 (Version 2)
Quarter: 2019Q1

REPORT INFORMATION
  Report Type: Spontaneous
  Country: GB (occurrence: GB)
  Receive Date: 20181109
  Receipt Date: 20190221
  Transmission Date: 20190417
  Serious: Yes (Death, Hospitalization, Other)
  Sender: FDA-Public Use
  Company Number: GB-AMGEN-GBRNI2018155183

PATIENT
  Sex: Female

DRUGS (40)
  1. CAPECITABINE. [Suspect]
     Active Substance: CAPECITABINE
     Indication: HER-2 POSITIVE BREAST CANCER
     Dosage: 1 DF, QD (1500 MG AND 2000 MG)
     Route: 048
     Dates: start: 20160510, end: 20160531
  2. DOCETAXEL. [Suspect]
     Active Substance: DOCETAXEL
     Indication: HER-2 POSITIVE BREAST CANCER
     Dosage: 116 MG, Q3WK
     Route: 042
     Dates: start: 20150708, end: 20150729
  3. DOCETAXEL. [Suspect]
     Active Substance: DOCETAXEL
     Dosage: 132 MG, UNK
     Route: 042
     Dates: start: 20150519, end: 20150708
  4. DOMPERIDONE [Concomitant]
     Active Substance: DOMPERIDONE
     Dosage: 30 MG, QD
     Route: 048
     Dates: start: 20150609, end: 20150611
  5. DEXAMETHASONE. [Concomitant]
     Active Substance: DEXAMETHASONE
     Dosage: 4 MG, QD (4 TABLETS 2 A DAY)
     Route: 048
     Dates: start: 20150610, end: 20150612
  6. XGEVA [Suspect]
     Active Substance: DENOSUMAB
     Indication: HER-2 POSITIVE BREAST CANCER
     Dosage: 120 MG, QMO
     Route: 058
     Dates: start: 20131007, end: 20160616
  7. XGEVA [Suspect]
     Active Substance: DENOSUMAB
     Dosage: 120 MG, QMO
     Route: 058
     Dates: start: 20150430
  8. XGEVA [Suspect]
     Active Substance: DENOSUMAB
     Dosage: 120 MG, QD
     Route: 042
     Dates: start: 20150701, end: 20150701
  9. XGEVA [Suspect]
     Active Substance: DENOSUMAB
     Dosage: 120 MG, QD
     Route: 042
     Dates: start: 20150912, end: 20150912
  10. DOCETAXEL. [Suspect]
     Active Substance: DOCETAXEL
     Dosage: 95 MG, UNK
     Route: 042
     Dates: start: 20150826, end: 20150915
  11. DOMPERIDONE [Concomitant]
     Active Substance: DOMPERIDONE
     Dosage: 30 MG, QD
     Route: 048
     Dates: start: 20150912, end: 20150914
  12. CHLORHEXIDINE GLUCONATE. [Concomitant]
     Active Substance: CHLORHEXIDINE GLUCONATE
     Dosage: 20 ML, QD
     Route: 048
     Dates: start: 20150708
  13. TRASTUZUMAB. [Suspect]
     Active Substance: TRASTUZUMAB
     Indication: HER-2 POSITIVE BREAST CANCER
     Dosage: 600 MG, UNK
     Route: 042
     Dates: start: 20150518, end: 20150518
  14. DEXAMETHASONE. [Concomitant]
     Active Substance: DEXAMETHASONE
     Dosage: 4 MG, QD (4 TABLETS 2 A DAY)
     Route: 048
     Dates: start: 20150727, end: 20150729
  15. DEXAMETHASONE. [Concomitant]
     Active Substance: DEXAMETHASONE
     Dosage: 4 MG, QD (4 TABLETS 2 A DAY)
     Route: 048
     Dates: start: 20150912, end: 20150914
  16. SODIUM CHLORIDE. [Concomitant]
     Active Substance: SODIUM CHLORIDE
     Route: 042
  17. 3M CAVILON ANTIFUNGAL [Concomitant]
     Active Substance: MICONAZOLE NITRATE
     Dosage: 2 UNK, QD (CAVILON DURABLE BARRIER CREAMAPPLIED DURING CHANGING PICC LINE DRESSINGS)
     Route: 061
     Dates: start: 20151028
  18. CYCLIZINE HYDROCHLORIDE [Concomitant]
     Active Substance: CYCLIZINE HYDROCHLORIDE
     Dosage: 150 MG, QD
     Route: 048
     Dates: start: 20150521, end: 201602
  19. TRASTUZUMAB. [Suspect]
     Active Substance: TRASTUZUMAB
     Dosage: 450 MG, Q3WK
     Route: 042
     Dates: start: 20150611
  20. PERTUZUMAB. [Suspect]
     Active Substance: PERTUZUMAB
     Dosage: 420 MG, Q3WK
     Route: 042
     Dates: start: 20150611
  21. DOMPERIDONE [Concomitant]
     Active Substance: DOMPERIDONE
     Indication: MALAISE
     Dosage: 30 MG, QD
     Route: 048
     Dates: start: 20150727, end: 20150729
  22. DEXAMETHASONE. [Concomitant]
     Active Substance: DEXAMETHASONE
     Dosage: 16 MG, QD (4 TABS)
     Route: 048
     Dates: start: 20160628, end: 20160718
  23. DEXAMETHASONE. [Concomitant]
     Active Substance: DEXAMETHASONE
     Dosage: 2 MG, QD
     Route: 048
     Dates: start: 20150613, end: 20150704
  24. OXYCODONE [Concomitant]
     Active Substance: OXYCODONE
     Dosage: 10 MG, QD
     Route: 048
     Dates: start: 20150521
  25. OXYCODONE [Concomitant]
     Active Substance: OXYCODONE
     Dosage: 40 MG, QD
     Route: 048
     Dates: start: 20150521
  26. XGEVA [Suspect]
     Active Substance: DENOSUMAB
     Dosage: 120 MG, QD
     Route: 042
     Dates: start: 20150821, end: 20150821
  27. CAPECITABINE. [Suspect]
     Active Substance: CAPECITABINE
     Dosage: 500 MG, Q3WK
     Route: 048
     Dates: start: 20160510, end: 20160521
  28. DOMPERIDONE [Concomitant]
     Active Substance: DOMPERIDONE
     Dosage: 10 MG, UNK
     Route: 048
  29. DEXAMETHASONE. [Concomitant]
     Active Substance: DEXAMETHASONE
     Dosage: UNK
     Route: 048
  30. DEXAMETHASONE. [Concomitant]
     Active Substance: DEXAMETHASONE
     Dosage: 4 MG, QD (4 TABLETS 2 A DAY)
     Route: 048
     Dates: start: 20150821, end: 20150823
  31. OXYCODONE [Concomitant]
     Active Substance: OXYCODONE
     Dosage: 10 MG, UNK
     Route: 048
  32. CYCLIZINE HYDROCHLORIDE [Concomitant]
     Active Substance: CYCLIZINE HYDROCHLORIDE
     Dosage: 150 MG, QD
     Route: 048
     Dates: start: 20160627
  33. ONDANSETRON [Concomitant]
     Active Substance: ONDANSETRON
     Dosage: 8 MG, UNK
     Route: 048
  34. TRASTUZUMAB. [Suspect]
     Active Substance: TRASTUZUMAB
     Dosage: 600 MG, Q3WK
     Route: 058
     Dates: start: 20150520, end: 20150520
  35. PERTUZUMAB. [Suspect]
     Active Substance: PERTUZUMAB
     Indication: HER-2 POSITIVE BREAST CANCER
     Dosage: 840 MG, UNK
     Route: 042
     Dates: start: 20150518
  36. HEPARIN [Concomitant]
     Active Substance: HEPARIN SODIUM
     Dosage: 500 IU, UNK ( IN 5 ML)
     Route: 042
  37. ONDANSETRON [Concomitant]
     Active Substance: ONDANSETRON
     Dosage: 8 MG, UNK
     Route: 048
  38. ONDANSETRON [Concomitant]
     Active Substance: ONDANSETRON
     Dosage: 8 MG, UNK
     Route: 048
  39. LANSOPRAZOLE. [Concomitant]
     Active Substance: LANSOPRAZOLE
     Dosage: 30 MG, QD
     Route: 048
     Dates: start: 20150521
  40. LOPERAMIDE [Concomitant]
     Active Substance: LOPERAMIDE
     Dosage: 2 MG, UNK
     Route: 048

REACTIONS (32)
  - Metastases to meninges [Fatal]
  - Weight increased [Unknown]
  - Palpitations [Unknown]
  - Anxiety [Recovered/Resolved]
  - Nausea [Recovering/Resolving]
  - Hypoglycaemia [Not Recovered/Not Resolved]
  - Claustrophobia [Unknown]
  - Back pain [Not Recovered/Not Resolved]
  - Hypocalcaemia [Recovered/Resolved]
  - Neuropathy peripheral [Recovered/Resolved]
  - Lethargy [Recovered/Resolved]
  - Pericardial effusion [Recovered/Resolved]
  - Rash erythematous [Recovered/Resolved]
  - Cushingoid [Unknown]
  - Decreased appetite [Recovered/Resolved]
  - Vision blurred [Recovered/Resolved]
  - Fatigue [Recovering/Resolving]
  - Off label use [Unknown]
  - Eye haemorrhage [Not Recovered/Not Resolved]
  - Erythema [Recovered/Resolved]
  - Malaise [Recovering/Resolving]
  - Eye pruritus [Recovered/Resolved]
  - Catheter site inflammation [Recovered/Resolved]
  - Impaired gastric emptying [Recovered/Resolved]
  - Spinal fracture [Recovered/Resolved]
  - Vomiting [Recovered/Resolved]
  - Incorrect route of product administration [Unknown]
  - Pruritus [Recovered/Resolved]
  - Rash [Recovered/Resolved]
  - Breast tenderness [Unknown]
  - Visual impairment [Not Recovered/Not Resolved]
  - Dry eye [Recovered/Resolved]

NARRATIVE: CASE EVENT DATE: 20150521
